FAERS Safety Report 9828518 (Version 3)
Quarter: 2016Q1

REPORT INFORMATION
  Report Type: Report from Study
  Country: US (occurrence: US)
  Receive Date: 20140117
  Receipt Date: 20160203
  Transmission Date: 20160526
  Serious: Yes (Death, Other)
  Sender: FDA-Public Use
  Company Number: US-BRISTOL-MYERS SQUIBB COMPANY-19987213

PATIENT
  Age: 32 Year
  Sex: Female

DRUGS (7)
  1. PREZISTA [Suspect]
     Active Substance: DARUNAVIR ETHANOLATE
     Indication: ANTIRETROVIRAL THERAPY
     Dosage: 800 MG, QD
     Route: 048
     Dates: start: 20120911, end: 20131027
  2. PREZISTA [Suspect]
     Active Substance: DARUNAVIR ETHANOLATE
     Dosage: 2400 MG, QD
     Route: 048
     Dates: start: 20130528, end: 20131027
  3. TRUVADA [Suspect]
     Active Substance: EMTRICITABINE\TENOFOVIR DISOPROXIL FUMARATE
     Indication: ANTIRETROVIRAL THERAPY
     Dosage: 27-OCT-2013
     Route: 048
     Dates: start: 20120911
  4. RITONAVIR. [Suspect]
     Active Substance: RITONAVIR
     Dosage: 400 MG, QD
     Route: 048
     Dates: start: 20130528, end: 20131027
  5. ENTECAVIR. [Suspect]
     Active Substance: ENTECAVIR
     Indication: ANTIRETROVIRAL THERAPY
     Dosage: 400 MG, QD
     Route: 048
     Dates: start: 20130528, end: 20131022
  6. RITONAVIR. [Suspect]
     Active Substance: RITONAVIR
     Indication: ANTIRETROVIRAL THERAPY
     Dosage: 100 MG, QD
     Route: 048
     Dates: start: 20120911, end: 20130527
  7. LAMIVUDINE. [Suspect]
     Active Substance: LAMIVUDINE
     Indication: ANTIRETROVIRAL THERAPY
     Dosage: 300 MG, QD
     Route: 048
     Dates: start: 20131022, end: 20131027

REACTIONS (3)
  - Maternal exposure during pregnancy [Recovered/Resolved]
  - Postpartum haemorrhage [Fatal]
  - Stillbirth [Unknown]

NARRATIVE: CASE EVENT DATE: 20131027
